FAERS Safety Report 11526228 (Version 1)
Quarter: 2015Q3

REPORT INFORMATION
  Report Type: Spontaneous
  Country: DE (occurrence: DE)
  Receive Date: 20150919
  Receipt Date: 20150919
  Transmission Date: 20151125
  Serious: Yes (Hospitalization, Congenital Anomaly, Other)
  Sender: FDA-Public Use
  Company Number: DE-CIPLA LTD.-2015DE07392

PATIENT

DRUGS (1)
  1. LAMOTRIGINE. [Suspect]
     Active Substance: LAMOTRIGINE
     Indication: IDIOPATHIC GENERALISED EPILEPSY
     Dosage: 500 MG, QD
     Route: 064

REACTIONS (4)
  - DiGeorge^s syndrome [Unknown]
  - Foetal exposure during pregnancy [Unknown]
  - Interruption of aortic arch [Unknown]
  - Ventricular septal defect [Unknown]
